FAERS Safety Report 8523802-9 (Version None)
Quarter: 2012Q3

REPORT INFORMATION
  Report Type: 
  Country: None (occurrence: None)
  Receive Date: 20120720
  Receipt Date: 20120709
  Transmission Date: 20120928
  Serious: Yes (Other)
  Sender: FDA-Public Use
  Company Number: US-SANOFI-AVENTIS-2012SA049319

PATIENT

DRUGS (1)
  1. ELOXATIN [Suspect]

REACTIONS (2)
  - THROMBOCYTOPENIA [None]
  - PORTAL HYPERTENSION [None]
